FAERS Safety Report 9511274 (Version 1)
Quarter: 2013Q3

REPORT INFORMATION
  Report Type: Spontaneous
  Country: US (occurrence: None)
  Receive Date: 20130906
  Receipt Date: 20130906
  Transmission Date: 20140515
  Serious: Yes (Hospitalization)
  Sender: FDA-Public Use
  Company Number: 2013AP007781

PATIENT
  Sex: 0

DRUGS (2)
  1. HALOPERIDOL [Suspect]
     Indication: DELIRIUM
     Dosage: 17.5 MG, 24 HOURS
  2. HALOPERIDOL [Suspect]
     Indication: AGITATION
     Dosage: 17.5 MG, 24 HOURS

REACTIONS (2)
  - Sedation [None]
  - Drug ineffective [None]
